FAERS Safety Report 20197455 (Version 1)
Quarter: 2021Q4

REPORT INFORMATION
  Report Type: Spontaneous
  Country: US (occurrence: US)
  Receive Date: 20211217
  Receipt Date: 20211217
  Transmission Date: 20220303
  Serious: No
  Sender: FDA-Public Use
  Company Number: US-PACIRA-2021000019

PATIENT
  Age: 66 Year
  Sex: Female

DRUGS (4)
  1. EXPAREL [Suspect]
     Active Substance: BUPIVACAINE
     Dosage: 5 ML OF EXPAREL ADMIXED WITH 25 MG OF ROPIVACAINE
     Route: 065
     Dates: start: 20210119, end: 20210119
  2. EXPAREL [Suspect]
     Active Substance: BUPIVACAINE
     Dosage: 5 ML OF EXPAREL ADMIXED WITH BUPIVACAINE
     Route: 065
     Dates: start: 20210119, end: 20210119
  3. ROPIVACAINE [Suspect]
     Active Substance: ROPIVACAINE
     Dosage: 25 MG ADMIXED WITH 5 ML OF EXPAREL
     Route: 065
     Dates: start: 20210119, end: 20210119
  4. BUPIVACAINE [Suspect]
     Active Substance: BUPIVACAINE
     Dosage: UNKNOWN DOSE ADMIXED WITH 5 ML OF EXPAREL
     Route: 065
     Dates: start: 20210119, end: 20210119

REACTIONS (2)
  - No adverse event [Unknown]
  - Labelled drug-drug interaction medication error [Unknown]

NARRATIVE: CASE EVENT DATE: 20210119
